FAERS Safety Report 5825078-X (Version None)
Quarter: 2008Q3

REPORT INFORMATION
  Report Type: 
  Country: None (occurrence: None)
  Receive Date: 20080724
  Receipt Date: 20080724
  Transmission Date: 20090109
  Serious: No
  Sender: FDA-Public Use
  Company Number: None

PATIENT
  Age: 47 Year
  Sex: Female

DRUGS (1)
  1. OPTIRAY 300 [Suspect]
     Dosage: 100ML IV
     Route: 042
     Dates: start: 20080613

REACTIONS (1)
  - UNEVALUABLE EVENT [None]
